FAERS Safety Report 7133519-3 (Version None)
Quarter: 2010Q4

REPORT INFORMATION
  Report Type: 
  Country: None (occurrence: None)
  Receive Date: 20101202
  Receipt Date: 20101201
  Transmission Date: 20110411
  Serious: Yes (Hospitalization)
  Sender: FDA-Public Use
  Company Number: US-PFIZER INC-2010157252

PATIENT
  Sex: Female
  Weight: 14.059 kg

DRUGS (1)
  1. SOMATROPIN [Suspect]
     Indication: PRADER-WILLI SYNDROME
     Dosage: 0.3 MG, 1X/DAY
     Route: 058
     Dates: start: 20080408, end: 20100713

REACTIONS (1)
  - SLEEP APNOEA SYNDROME [None]
